FAERS Safety Report 13632472 (Version 1)
Quarter: 2017Q2

REPORT INFORMATION
  Report Type: Spontaneous
  Country: US (occurrence: US)
  Receive Date: 20170531
  Receipt Date: 20170531
  Transmission Date: 20170830
  Serious: No
  Sender: FDA-Public Use
  Company Number: US-ASTELLAS-1460724

PATIENT
  Sex: Female

DRUGS (5)
  1. ACETAMINOPHEN/HYDROCODONE [Concomitant]
     Active Substance: ACETAMINOPHEN\HYDROCODONE
  2. GABAPENTIN. [Concomitant]
     Active Substance: GABAPENTIN
  3. TARCEVA [Suspect]
     Active Substance: ERLOTINIB HYDROCHLORIDE
     Route: 048
     Dates: start: 20140911
  4. TARCEVA [Suspect]
     Active Substance: ERLOTINIB HYDROCHLORIDE
     Indication: LUNG NEOPLASM MALIGNANT
     Route: 048
     Dates: start: 20140424
  5. MEGESTROL [Concomitant]
     Active Substance: MEGESTROL

REACTIONS (7)
  - Blister [Unknown]
  - Rash [Unknown]
  - Cardiac murmur [Unknown]
  - Constipation [Unknown]
  - Diarrhoea [Unknown]
  - Acne [Unknown]
  - Gastric disorder [Unknown]
